FAERS Safety Report 7310659-7 (Version None)
Quarter: 2011Q1

REPORT INFORMATION
  Report Type: 
  Country: None (occurrence: None)
  Receive Date: 20110224
  Receipt Date: 20110128
  Transmission Date: 20110831
  Serious: No
  Sender: FDA-Public Use
  Company Number: US-B.I. PHARMACEUTICALS,INC./RIDGEFIELD-2011-BP-02881BP

PATIENT
  Age: 70 Year
  Sex: Male

DRUGS (2)
  1. PRADAXA [Suspect]
     Indication: ATRIAL FIBRILLATION
     Dosage: 300 MG
     Route: 048
     Dates: start: 20110127
  2. LOVAZA [Concomitant]
     Indication: BLOOD CHOLESTEROL INCREASED
     Dosage: 4000 MG
     Route: 048
     Dates: start: 20100101

REACTIONS (1)
  - POLLAKIURIA [None]
